FAERS Safety Report 10767516 (Version 1)
Quarter: 2015Q1

REPORT INFORMATION
  Report Type: Spontaneous
  Country: US (occurrence: US)
  Receive Date: 20150205
  Receipt Date: 20150205
  Transmission Date: 20150721
  Serious: No
  Sender: FDA-Public Use
  Company Number: US-PFIZER INC-2015045008

PATIENT
  Sex: Female
  Weight: 77 kg

DRUGS (2)
  1. NEURONTIN [Suspect]
     Active Substance: GABAPENTIN
     Indication: NEUROPATHY PERIPHERAL
     Dosage: UNK
     Dates: start: 201501
  2. MOTRIN [Concomitant]
     Active Substance: IBUPROFEN

REACTIONS (1)
  - Drug ineffective for unapproved indication [Unknown]
